FAERS Safety Report 17571455 (Version 2)
Quarter: 2020Q1

REPORT INFORMATION
  Report Type: Spontaneous
  Country: US (occurrence: US)
  Receive Date: 20200323
  Receipt Date: 20200323
  Transmission Date: 20200409
  Serious: Yes (Other)
  Sender: FDA-Public Use
  Company Number: NVSC2020US080855

PATIENT

DRUGS (5)
  1. PREDNISONE. [Suspect]
     Active Substance: PREDNISONE
     Indication: CENTRAL NERVOUS SYSTEM LYMPHOMA
     Dosage: 60 MG/M2, QD (DAY1-5, 28-DAY CYCLES)
     Route: 065
     Dates: start: 200905, end: 201905
  2. RITUXIMAB. [Suspect]
     Active Substance: RITUXIMAB
     Indication: CENTRAL NERVOUS SYSTEM LYMPHOMA
     Dosage: 500 MG/M2 (DAY 0 AND 14, 28-DAY CYCLES)
     Route: 065
     Dates: start: 200905, end: 201905
  3. BICNU [Suspect]
     Active Substance: CARMUSTINE
     Indication: CENTRAL NERVOUS SYSTEM LYMPHOMA
     Dosage: 100 MG/M2 (DAY 3, 28-DAY CYCLES)
     Route: 065
     Dates: start: 200905, end: 201905
  4. METHOTREXATE. [Suspect]
     Active Substance: METHOTREXATE
     Indication: CENTRAL NERVOUS SYSTEM LYMPHOMA
     Dosage: 3.5 MG/M2 (DAY 1 AND DAY 15,28-DAY CYCLES)
     Route: 065
     Dates: start: 200905, end: 201905
  5. ETOPOSIDE. [Suspect]
     Active Substance: ETOPOSIDE
     Indication: CENTRAL NERVOUS SYSTEM LYMPHOMA
     Dosage: 100 MG/M2 (DAY 2,28-DAY CYCLES)
     Route: 065
     Dates: start: 200905, end: 201905

REACTIONS (2)
  - Product use in unapproved indication [Unknown]
  - Nephropathy toxic [Unknown]
